FAERS Safety Report 7985736-8 (Version None)
Quarter: 2011Q4

REPORT INFORMATION
  Report Type: 
  Country: None (occurrence: None)
  Receive Date: 20111216
  Receipt Date: 20111216
  Transmission Date: 20120403
  Serious: Yes (Other)
  Sender: FDA-Public Use
  Company Number: None

PATIENT
  Sex: Female
  Weight: 72.57 kg

DRUGS (1)
  1. TYSABRI [Suspect]
     Indication: MULTIPLE SCLEROSIS
     Dosage: 300MG
     Route: 042
     Dates: start: 20110922, end: 20111215

REACTIONS (5)
  - CHEST DISCOMFORT [None]
  - BLOOD PRESSURE INCREASED [None]
  - ANXIETY [None]
  - HEART RATE INCREASED [None]
  - HYPOAESTHESIA [None]
